FAERS Safety Report 6678267-9 (Version None)
Quarter: 2010Q2

REPORT INFORMATION
  Report Type: 
  Country: None (occurrence: None)
  Receive Date: 20100408
  Receipt Date: 20100408
  Transmission Date: 20101027
  Serious: Yes (Life-Threatening, Hospitalization, Disabling, Other)
  Sender: FDA-Public Use
  Company Number: None

PATIENT
  Age: 30 Year
  Sex: Male
  Weight: 54.4316 kg

DRUGS (3)
  1. ADDERALL 30 [Suspect]
  2. VYVANSE [Suspect]
  3. VYVANASE [Concomitant]

REACTIONS (13)
  - AFFECTIVE DISORDER [None]
  - AGGRESSION [None]
  - ATTENTION DEFICIT/HYPERACTIVITY DISORDER [None]
  - DECREASED APPETITE [None]
  - DRUG ABUSE [None]
  - DRUG INEFFECTIVE [None]
  - EUPHORIC MOOD [None]
  - HALLUCINATION [None]
  - INSOMNIA [None]
  - IRRITABILITY [None]
  - PARANOIA [None]
  - PRODUCT QUALITY ISSUE [None]
  - THIRST [None]
